FAERS Safety Report 24325649 (Version 1)
Quarter: 2024Q3

REPORT INFORMATION
  Report Type: Spontaneous
  Country: SE (occurrence: SE)
  Receive Date: 20240917
  Receipt Date: 20240917
  Transmission Date: 20241017
  Serious: Yes (Hospitalization)
  Sender: NOVO NORDISK
  Company Number: SE-NOVOPROD-1279931

PATIENT
  Age: 42 Year
  Sex: Female

DRUGS (1)
  1. WEGOVY [Suspect]
     Active Substance: SEMAGLUTIDE
     Indication: Product used for unknown indication
     Dosage: 2.4 MG, QW
     Dates: start: 20240510

REACTIONS (3)
  - Cystitis [Unknown]
  - Pain [Unknown]
  - Symptom masked [Not Recovered/Not Resolved]

NARRATIVE: CASE EVENT DATE: 20240815
